FAERS Safety Report 18004379 (Version 1)
Quarter: 2020Q3

REPORT INFORMATION
  Report Type: Spontaneous
  Country: DE (occurrence: DE)
  Receive Date: 20200709
  Receipt Date: 20200709
  Transmission Date: 20201103
  Serious: Yes (Other)
  Sender: FDA-Public Use
  Company Number: DE-GILEAD-2020-0474108

PATIENT
  Age: 68 Year
  Sex: Male
  Weight: 57.2 kg

DRUGS (7)
  1. ODEFSEY [Suspect]
     Active Substance: EMTRICITABINE\RILPIVIRINE HYDROCHLORIDE\TENOFOVIR ALAFENAMIDE FUMARATE
     Indication: PRODUCT USED FOR UNKNOWN INDICATION
     Dosage: 1 DOSAGE FORM
     Route: 048
  2. OMEPRAZOL [OMEPRAZOLE] [Concomitant]
     Active Substance: OMEPRAZOLE
     Dosage: UNK
     Dates: start: 20200601, end: 20200615
  3. TEBONIN INTENS [Concomitant]
     Active Substance: GINKGO
  4. SALBUTAMOL [Concomitant]
     Active Substance: ALBUTEROL
  5. SPIOLTO RESPIMAT [Concomitant]
     Active Substance: OLODATEROL HYDROCHLORIDE\TIOTROPIUM BROMIDE MONOHYDRATE
     Indication: CHRONIC OBSTRUCTIVE PULMONARY DISEASE
  6. PREDNISOLON [PREDNISOLONE ACETATE] [Concomitant]
     Active Substance: PREDNISOLONE ACETATE
     Indication: URTICARIA
     Dosage: UNK
     Dates: start: 20200601, end: 20200615
  7. AMOXICILLIN. [Concomitant]
     Active Substance: AMOXICILLIN
     Indication: INFLAMMATION
     Dosage: UNK
     Dates: start: 20200601, end: 20200607

REACTIONS (3)
  - Impaired healing [Not Recovered/Not Resolved]
  - Tooth extraction [Recovered/Resolved]
  - Hepatitis E [Not Recovered/Not Resolved]

NARRATIVE: CASE EVENT DATE: 202005
